FAERS Safety Report 9296445 (Version 4)
Quarter: 2014Q3

REPORT INFORMATION
  Report Type: Spontaneous
  Country: US (occurrence: US)
  Receive Date: 20130517
  Receipt Date: 20140721
  Transmission Date: 20150326
  Serious: Yes (Hospitalization, Other)
  Sender: FDA-Public Use
  Company Number: US-009507513-1305USA009514

PATIENT
  Sex: Female
  Weight: 95.24 kg

DRUGS (3)
  1. CITALOPRAM [Concomitant]
     Active Substance: CITALOPRAM HYDROBROMIDE
     Indication: ANXIETY
     Dosage: 20 MG, QD
     Dates: start: 2009
  2. HYDROXYZINE [Concomitant]
     Active Substance: HYDROXYZINE\HYDROXYZINE HYDROCHLORIDE
     Indication: ANXIETY
     Dosage: 10 MG, QD
     Dates: start: 2009, end: 2011
  3. NUVARING [Suspect]
     Active Substance: ETHINYL ESTRADIOL\ETONOGESTREL
     Indication: CONTRACEPTION
     Dosage: RING INSERTED FOR 3 WKS/OUT FOR 1 WK
     Route: 067
     Dates: start: 2009, end: 20110622

REACTIONS (17)
  - Amenorrhoea [Unknown]
  - Syncope [Unknown]
  - Presyncope [Unknown]
  - Depression [Unknown]
  - Fibula fracture [Unknown]
  - Insomnia [Unknown]
  - Open reduction of fracture [Unknown]
  - Coagulopathy [Unknown]
  - Multiple allergies [Unknown]
  - Deep vein thrombosis [Unknown]
  - Headache [Unknown]
  - Thrombosis [Unknown]
  - Drug hypersensitivity [Unknown]
  - Loss of consciousness [Unknown]
  - Chest pain [Recovered/Resolved]
  - Pulmonary embolism [Unknown]
  - Maternal exposure before pregnancy [Unknown]

NARRATIVE: CASE EVENT DATE: 200911
